FAERS Safety Report 5227847-6 (Version None)
Quarter: 2007Q1

REPORT INFORMATION
  Report Type: 
  Country: None (occurrence: None)
  Receive Date: 20070202
  Receipt Date: 20070122
  Transmission Date: 20070707
  Serious: Yes (Other)
  Sender: FDA-Public Use
  Company Number: JP-PFIZER INC-2007005049

PATIENT
  Age: 84 Year
  Sex: Male

DRUGS (2)
  1. ZYVOX [Suspect]
     Indication: POST PROCEDURAL INFECTION
     Dosage: DAILY DOSE:1200MG
     Route: 042
     Dates: start: 20061220, end: 20061224
  2. ZYVOX [Suspect]
     Indication: POST PROCEDURAL INFECTION
     Route: 048

REACTIONS (1)
  - GASTRITIS [None]
